FAERS Safety Report 6383439-7 (Version None)
Quarter: 2009Q3

REPORT INFORMATION
  Report Type: 
  Country: None (occurrence: None)
  Receive Date: 20090924
  Receipt Date: 20090722
  Transmission Date: 20100115
  Serious: No
  Sender: FDA-Public Use
  Company Number: US-CVT-090464

PATIENT
  Age: 80 Year
  Sex: Male

DRUGS (3)
  1. RANEXA [Suspect]
     Indication: ANGINA PECTORIS
     Dosage: 500 MG, BID, ORAL : 1000 MG, BID, ORAL
     Route: 048
     Dates: start: 20090401, end: 20090701
  2. RANEXA [Suspect]
     Indication: ANGINA PECTORIS
     Dosage: 500 MG, BID, ORAL : 1000 MG, BID, ORAL
     Route: 048
     Dates: start: 20090701, end: 20090720
  3. RANEXA [Suspect]
     Indication: ANGINA PECTORIS
     Dosage: 500 MG, BID, ORAL : 1000 MG, BID, ORAL
     Route: 048
     Dates: start: 20090721

REACTIONS (2)
  - BALANCE DISORDER [None]
  - HEADACHE [None]
